FAERS Safety Report 7355084-8 (Version None)
Quarter: 2011Q1

REPORT INFORMATION
  Report Type: 
  Country: None (occurrence: None)
  Receive Date: 20110316
  Receipt Date: 20110311
  Transmission Date: 20110831
  Serious: No
  Sender: FDA-Public Use
  Company Number: US-PFIZER INC-2011054724

PATIENT
  Sex: Female
  Weight: 90.703 kg

DRUGS (1)
  1. MEDROXYPROGESTERONE ACETATE [Suspect]
     Indication: CONTRACEPTION
     Dosage: 150 MG, EVERY 3 MONTHS
     Route: 030
     Dates: start: 19960101

REACTIONS (1)
  - ALOPECIA [None]
